FAERS Safety Report 4579948-3 (Version None)
Quarter: 2005Q1

REPORT INFORMATION
  Report Type: 
  Country: None (occurrence: None)
  Receive Date: 20050214
  Receipt Date: 20050203
  Transmission Date: 20050727
  Serious: Yes (Hospitalization)
  Sender: FDA-Public Use
  Company Number: US-BRISTOL-MYERS SQUIBB COMPANY-12848297

PATIENT
  Age: 77 Year
  Sex: Female
  Weight: 52 kg

DRUGS (5)
  1. CISPLATIN [Suspect]
     Indication: SMALL CELL LUNG CANCER STAGE UNSPECIFIED
     Route: 042
     Dates: start: 20010914, end: 20010914
  2. ETOPOSIDE [Suspect]
     Indication: SMALL CELL LUNG CANCER STAGE UNSPECIFIED
     Route: 042
     Dates: start: 20010914, end: 20010914
  3. ALBUTEROL [Concomitant]
     Indication: ANTASTHMATIC DRUG LEVEL
     Route: 050
     Dates: start: 20010914
  4. VERAPAMIL [Concomitant]
     Indication: CARDIAC DISORDER
     Dosage: 240 MG A.M.; 120 MG P.M.
     Route: 048
  5. LEVOTHYROXINE [Concomitant]
     Indication: THYROID DISORDER
     Route: 048

REACTIONS (1)
  - RENAL FAILURE [None]
